FAERS Safety Report 13545783 (Version 1)
Quarter: 2017Q2

REPORT INFORMATION
  Report Type: Spontaneous
  Country: None (occurrence: IT)
  Receive Date: 20170515
  Receipt Date: 20170515
  Transmission Date: 20170830
  Serious: Yes (Other)
  Sender: FDA-Public Use
  Company Number: IT-MEDAC PHARMA, INC.-2020746

PATIENT
  Age: 68 Year
  Sex: Male

DRUGS (7)
  1. TRENTAL [Concomitant]
     Active Substance: PENTOXIFYLLINE
  2. TICLOPIDINE HYDROCHLORIDE. [Concomitant]
     Active Substance: TICLOPIDINE HYDROCHLORIDE
  3. METHOTREXATE. [Suspect]
     Active Substance: METHOTREXATE
     Route: 030
  4. PREDNISONE. [Concomitant]
     Active Substance: PREDNISONE
  5. SIMPONI [Suspect]
     Active Substance: GOLIMUMAB
     Route: 058
     Dates: start: 20160704, end: 20170426
  6. FOLIC ACID. [Concomitant]
     Active Substance: FOLIC ACID
  7. PANTOPRAZOLE SODIUM. [Concomitant]
     Active Substance: PANTOPRAZOLE SODIUM

REACTIONS (2)
  - Mycobacterial infection [Unknown]
  - Pulmonary mass [Unknown]

NARRATIVE: CASE EVENT DATE: 20170426
